FAERS Safety Report 7543168-0 (Version None)
Quarter: 2011Q2

REPORT INFORMATION
  Report Type: 
  Country: None (occurrence: None)
  Receive Date: 20110613
  Receipt Date: 20110601
  Transmission Date: 20111010
  Serious: Yes (Hospitalization, Other)
  Sender: FDA-Public Use
  Company Number: US-MERCK-1010USA00171

PATIENT
  Age: 51 Year
  Sex: Female
  Weight: 62 kg

DRUGS (10)
  1. FOSAMAX [Suspect]
     Route: 048
     Dates: start: 20011201, end: 20080101
  2. FOSAMAX [Suspect]
     Route: 048
     Dates: start: 20011201, end: 20080101
  3. FOSAMAX [Suspect]
     Route: 048
     Dates: start: 20010101
  4. ALENDRONATE SODIUM [Suspect]
     Indication: OSTEOPENIA
     Route: 048
     Dates: start: 20080101, end: 20090926
  5. ALENDRONATE SODIUM [Suspect]
     Indication: OSTEOPOROSIS
     Route: 048
     Dates: start: 20080101, end: 20090926
  6. CHONDROITIN SULFATE SODIUM AND GLUCOSAMINE SULFATE [Concomitant]
     Route: 048
     Dates: start: 19990101
  7. FOSAMAX [Suspect]
     Indication: OSTEOPOROSIS
     Route: 048
     Dates: start: 20010810, end: 20011201
  8. CALCIUM (UNSPECIFIED) AND VITAMIN D (UNSPECIFIED) [Concomitant]
     Route: 048
     Dates: start: 19900101, end: 20100501
  9. FOSAMAX [Suspect]
     Indication: OSTEOPENIA
     Route: 048
     Dates: start: 20010810, end: 20011201
  10. FOSAMAX [Suspect]
     Route: 048
     Dates: start: 20010101

REACTIONS (24)
  - RECTAL POLYP [None]
  - PHARYNGEAL DISORDER [None]
  - STAPHYLOCOCCAL INFECTION [None]
  - RHINITIS SEASONAL [None]
  - BLOOD GLUCOSE INCREASED [None]
  - BLOOD CHOLESTEROL INCREASED [None]
  - BREAST CALCIFICATIONS [None]
  - FURUNCLE [None]
  - HYPERTENSION [None]
  - ATROPHIC VULVOVAGINITIS [None]
  - ALLERGY TO ARTHROPOD BITE [None]
  - ARTHRALGIA [None]
  - INAPPROPRIATE SCHEDULE OF DRUG ADMINISTRATION [None]
  - NASAL OBSTRUCTION [None]
  - LOW TURNOVER OSTEOPATHY [None]
  - FEMUR FRACTURE [None]
  - BRONCHITIS [None]
  - BACK PAIN [None]
  - FALL [None]
  - ANGIODYSPLASIA [None]
  - HAEMORRHOIDS [None]
  - FOOT FRACTURE [None]
  - HYPERCHOLESTEROLAEMIA [None]
  - DYSPLASTIC NAEVUS [None]
